FAERS Safety Report 10744195 (Version 1)
Quarter: 2015Q1

REPORT INFORMATION
  Report Type: Report from Study
  Country: CZ (occurrence: CZ)
  Receive Date: 20150128
  Receipt Date: 20150128
  Transmission Date: 20150721
  Serious: Yes (Hospitalization)
  Sender: FDA-Public Use
  Company Number: CZ-ABBVIE-15K-217-1337436-00

PATIENT
  Age: 21 Year
  Sex: Female

DRUGS (2)
  1. NIMESIL [Concomitant]
     Active Substance: NIMESULIDE
     Indication: PRODUCT USED FOR UNKNOWN INDICATION
     Dates: start: 20130822
  2. HUMIRA [Suspect]
     Active Substance: ADALIMUMAB
     Indication: ANKYLOSING SPONDYLITIS
     Route: 058
     Dates: start: 20140328, end: 20140523

REACTIONS (4)
  - Crohn^s disease [Recovering/Resolving]
  - Subileus [Recovering/Resolving]
  - Gastrointestinal inflammation [Recovering/Resolving]
  - Ileal perforation [Recovering/Resolving]

NARRATIVE: CASE EVENT DATE: 20140527
